FAERS Safety Report 8607967 (Version 2)
Quarter: 2013Q3

REPORT INFORMATION
  Report Type: Spontaneous
  Country: US (occurrence: US)
  Receive Date: 20120611
  Receipt Date: 20130807
  Transmission Date: 20140515
  Serious: Yes (Disabling)
  Sender: FDA-Public Use
  Company Number: US-ASTRAZENECA-2012SE35354

PATIENT
  Age: 54 Year
  Sex: Male
  Weight: 81.6 kg

DRUGS (20)
  1. NEXIUM [Suspect]
     Dosage: ONCE SOMETIMES 2 TIMES A DAY
     Route: 048
     Dates: start: 2001
  2. NEXIUM [Suspect]
     Route: 048
     Dates: start: 20090326
  3. TUMS [Concomitant]
  4. ALKA SELTZER [Concomitant]
  5. MILK OF MAGNESIA [Concomitant]
  6. PEPTO BISMOL [Concomitant]
  7. ROLAIDS [Concomitant]
  8. MYLANTA [Concomitant]
  9. CIALIS [Concomitant]
     Dates: start: 20080105
  10. FLUOCINONIDE [Concomitant]
     Dosage: 0.05 CRE
     Dates: start: 20090728
  11. LIPITOR [Concomitant]
     Dates: start: 20100203
  12. HYDROCODONE APAP [Concomitant]
     Dosage: 5/500
     Dates: start: 20100203
  13. LISINOPRIL [Concomitant]
     Dates: start: 20100203
  14. METOPROLOL TARTRATE [Concomitant]
     Dates: start: 20100212
  15. ASPIRIN EC [Concomitant]
     Dates: start: 20100809
  16. UROXATRAL [Concomitant]
     Dates: start: 20100827
  17. MULTIPLE VITAMIN [Concomitant]
     Dates: start: 20110218
  18. ALFUZOSIN ER [Concomitant]
     Dates: start: 20110919
  19. AMLODIPINE [Concomitant]
     Dates: start: 20130508
  20. PROCTOZON HC [Concomitant]
     Dates: start: 20130509

REACTIONS (9)
  - Arthropathy [Unknown]
  - Back disorder [Unknown]
  - Multiple fractures [Unknown]
  - Ankle fracture [Unknown]
  - Chronic obstructive pulmonary disease [Unknown]
  - Arthritis [Unknown]
  - Androgen deficiency [Unknown]
  - Vitamin D deficiency [Unknown]
  - Osteoporosis [Unknown]
